FAERS Safety Report 6734685-1 (Version None)
Quarter: 2010Q2

REPORT INFORMATION
  Report Type: 
  Country: None (occurrence: None)
  Receive Date: 20100519
  Receipt Date: 20100519
  Transmission Date: 20101027
  Serious: Yes (Hospitalization)
  Sender: FDA-Public Use
  Company Number: None

PATIENT
  Age: 57 Year
  Sex: Male

DRUGS (2)
  1. MORPHINE [Suspect]
     Indication: PAIN
     Dosage: 60 MG BID PO
     Route: 048
     Dates: start: 20080628, end: 20100513
  2. TIZANIDINE [Suspect]
     Indication: MUSCLE SPASMS
     Dosage: 4 MG TID PO
     Route: 048
     Dates: start: 20080107, end: 20100513

REACTIONS (5)
  - DIZZINESS [None]
  - OVERDOSE [None]
  - SEDATION [None]
  - SELF-MEDICATION [None]
  - SYNCOPE [None]
